FAERS Safety Report 4281403-5 (Version None)
Quarter: 2004Q1

REPORT INFORMATION
  Report Type: 
  Country: None (occurrence: None)
  Receive Date: 20040109
  Receipt Date: 20030917
  Transmission Date: 20041129
  Serious: No
  Sender: FDA-Public Use
  Company Number: US048002

PATIENT
  Age: 43 Year
  Sex: Female

DRUGS (2)
  1. KINERET [Suspect]
  2. FORTEO [Suspect]

REACTIONS (2)
  - SKIN REACTION [None]
  - URTICARIA [None]
